FAERS Safety Report 7584907-2 (Version None)
Quarter: 2011Q2

REPORT INFORMATION
  Report Type: 
  Country: None (occurrence: None)
  Receive Date: 20110630
  Receipt Date: 20110627
  Transmission Date: 20111010
  Serious: Yes (Hospitalization)
  Sender: FDA-Public Use
  Company Number: US-GILEAD-2011-0040904

PATIENT
  Sex: Female

DRUGS (2)
  1. LETAIRIS [Suspect]
     Indication: PULMONARY HYPERTENSION
     Route: 048
     Dates: start: 20100524
  2. LETAIRIS [Suspect]
     Indication: LEFT VENTRICULAR DYSFUNCTION

REACTIONS (2)
  - DEHYDRATION [None]
  - URINARY TRACT INFECTION [None]
